FAERS Safety Report 11225304 (Version 1)
Quarter: 2015Q2

REPORT INFORMATION
  Report Type: Spontaneous
  Country: US (occurrence: None)
  Receive Date: 20150626
  Receipt Date: 20150626
  Transmission Date: 20150821
  Serious: Yes (Other)
  Sender: FDA-Public Use
  Company Number: None

PATIENT
  Age: 59 Year
  Sex: Male
  Weight: 94.8 kg

DRUGS (10)
  1. MORPHINE [Concomitant]
     Active Substance: MORPHINE
  2. OXYCODONE [Concomitant]
     Active Substance: OXYCODONE
  3. CLONIDINE. [Concomitant]
     Active Substance: CLONIDINE
  4. MYCOPHENOLATE [Suspect]
     Active Substance: MYCOPHENOLIC ACID
  5. TEMAZEPAM. [Concomitant]
     Active Substance: TEMAZEPAM
  6. FOLIC ACID. [Concomitant]
     Active Substance: FOLIC ACID
  7. TACROLIMUS. [Suspect]
     Active Substance: TACROLIMUS
     Indication: RENAL TRANSPLANT
     Dates: start: 20130715
  8. PREDNISONE. [Suspect]
     Active Substance: PREDNISONE
  9. EQUATE DAILY VITAMINS [Concomitant]
  10. MAGNESIUM MALATE [Concomitant]

REACTIONS (1)
  - Wound [None]

NARRATIVE: CASE EVENT DATE: 20140805
